FAERS Safety Report 10077708 (Version 2)
Quarter: 2014Q2

REPORT INFORMATION
  Report Type: Report from Study
  Country: FI (occurrence: FI)
  Receive Date: 20140414
  Receipt Date: 20140428
  Transmission Date: 20141212
  Serious: Yes (Other)
  Sender: FDA-Public Use
  Company Number: PHHY2014FI045461

PATIENT
  Age: 50 Year
  Sex: Male

DRUGS (6)
  1. LEPONEX [Suspect]
     Indication: SCHIZOPHRENIA
     Dosage: UNK
     Dates: start: 1994
  2. LEPONEX [Suspect]
     Dosage: 900 MG, DAILY
  3. LEPONEX [Suspect]
     Dosage: UNK
     Dates: start: 2003
  4. RISPERIDONE CONSTA [Concomitant]
     Dosage: 50 MG, QW2
     Dates: start: 2009
  5. TEMESTA [Concomitant]
     Dosage: 1 MG, TID
  6. ZYPREXA [Concomitant]
     Dosage: UNK
     Dates: end: 2009

REACTIONS (5)
  - Oligodendroglioma benign [Not Recovered/Not Resolved]
  - Electrocardiogram QT prolonged [Unknown]
  - Epilepsy [Unknown]
  - Abnormal behaviour [Unknown]
  - Delusion [Unknown]
